FAERS Safety Report 8868142 (Version 1)
Quarter: 2012Q4

REPORT INFORMATION
  Report Type: 
  Country: US (occurrence: US)
  Receive Date: 20121025
  Receipt Date: 20121025
  Transmission Date: 20130627
  Serious: No
  Sender: FDA-Public Use
  Company Number: US-AMGEN-USASP2012019115

PATIENT
  Sex: Male
  Weight: 67.12 kg

DRUGS (6)
  1. ENBREL [Suspect]
     Indication: PRODUCT USED FOR UNKNOWN INDICATION
     Dosage: 50 mg, qwk
     Route: 058
  2. MULTIVITAMIN                       /00097801/ [Concomitant]
  3. ZYRTEC [Concomitant]
     Dosage: 5 mg, UNK
  4. VITAMIN D /00107901/ [Concomitant]
     Dosage: 1000 IU, UNK
  5. VITAMIN C                          /00008001/ [Concomitant]
     Dosage: 500 mg, UNK
  6. PROBIOTIC [Concomitant]

REACTIONS (1)
  - Injection site haemorrhage [Unknown]
